FAERS Safety Report 15141015 (Version 2)
Quarter: 2018Q4

REPORT INFORMATION
  Report Type: Spontaneous
  Country: FR (occurrence: FR)
  Receive Date: 20180713
  Receipt Date: 20181121
  Transmission Date: 20190204
  Serious: Yes (Other)
  Sender: FDA-Public Use
  Company Number: FR-AUROBINDO-AUR-APL-2018-035605

PATIENT
  Age: 47 Year
  Sex: Male
  Weight: 85 kg

DRUGS (7)
  1. LEVOTHYROX [Suspect]
     Active Substance: LEVOTHYROXINE
     Indication: BASEDOW^S DISEASE
     Dosage: 100 MICROGRAM, ONCE A DAY
     Route: 048
  2. MONOPROST [Suspect]
     Active Substance: LATANOPROST
     Indication: OCULAR HYPERTENSION
     Dosage: 1 GTT, ONCE A DAY
     Route: 047
  3. VITAMINE A DULCIS [Suspect]
     Active Substance: RETINOL
     Indication: PUNCTATE KERATITIS
     Dosage: 1 DOSAGE FORM, ONCE A DAY
     Route: 047
  4. EZETROL [Suspect]
     Active Substance: EZETIMIBE
     Indication: DYSLIPIDAEMIA
     Dosage: 10 MILLIGRAM, ONCE A DAY
     Route: 048
  5. AMLODIPINE [Suspect]
     Active Substance: AMLODIPINE BESYLATE
     Indication: HYPERTENSION
     Dosage: 10 MILLIGRAM, ONCE A DAY
     Route: 048
  6. NEO-MERCAZOLE [Suspect]
     Active Substance: CARBIMAZOLE
     Indication: BASEDOW^S DISEASE
     Dosage: 20 MILLIGRAM, ONCE A DAY
     Route: 048
     Dates: start: 201612
  7. VITAMINE A DULCIS [Suspect]
     Active Substance: RETINOL
     Indication: PUNCTATE KERATITIS

REACTIONS (1)
  - Hepatocellular injury [Not Recovered/Not Resolved]

NARRATIVE: CASE EVENT DATE: 20171222
